FAERS Safety Report 10144167 (Version 1)
Quarter: 2014Q2

REPORT INFORMATION
  Report Type: Report from Study
  Country: RO (occurrence: RO)
  Receive Date: 20140430
  Receipt Date: 20140430
  Transmission Date: 20141212
  Serious: Yes (Hospitalization)
  Sender: FDA-Public Use
  Company Number: RO-OTSUKA-US-2014-10868

PATIENT
  Age: 35 Year
  Sex: Male

DRUGS (2)
  1. OPC-14597 [Suspect]
     Indication: BIPOLAR I DISORDER
     Dosage: UNK
     Dates: start: 20130826, end: 20140209
  2. OPC-14597 [Suspect]
     Dosage: 300 MG MILLIGRAM(S), UNK
     Route: 030
     Dates: start: 20140210, end: 20140407

REACTIONS (1)
  - Bipolar I disorder [Recovering/Resolving]
